FAERS Safety Report 8564352-3 (Version None)
Quarter: 2012Q3

REPORT INFORMATION
  Report Type: 
  Country: None (occurrence: None)
  Receive Date: 20120803
  Receipt Date: 20120726
  Transmission Date: 20120928
  Serious: Yes (Hospitalization, Other)
  Sender: FDA-Public Use
  Company Number: CA-JNJFOC-20120713719

PATIENT
  Age: 40 Year
  Sex: Female

DRUGS (5)
  1. NUCYNTA ER [Suspect]
     Dosage: 2 TIMES A DAY
     Route: 048
  2. CLONAZEPAM [Concomitant]
     Dosage: 3 PER DAY
     Route: 065
  3. KEPPRA [Concomitant]
     Dosage: PER DAY
     Route: 065
  4. NUCYNTA ER [Suspect]
     Indication: PRODUCT USED FOR UNKNOWN INDICATION
     Dosage: 2 TIMES A DAY FOR 7X10 DAYS WITH A PROVISION FOR 50 MG BID TITRATION EVERY 5 DAYS
     Route: 048
  5. ESCITALOPRAM [Concomitant]
     Dosage: PER DAY
     Route: 065

REACTIONS (3)
  - DEPRESSED LEVEL OF CONSCIOUSNESS [None]
  - CONFUSIONAL STATE [None]
  - SEROTONIN SYNDROME [None]
